FAERS Safety Report 9639151 (Version 1)
Quarter: 2013Q4

REPORT INFORMATION
  Report Type: Spontaneous
  Country: US (occurrence: None)
  Receive Date: 20131021
  Receipt Date: 20131021
  Transmission Date: 20140711
  Serious: Yes (Other)
  Sender: FDA-Public Use
  Company Number: RB-58822-2013

PATIENT
  Age: 52 Year
  Sex: Female

DRUGS (1)
  1. MUCINEX [Suspect]
     Indication: PRODUCT USED FOR UNKNOWN INDICATION
     Dosage: (TOOK 3 TABLETS IN 12 HOURS ORAL)
     Route: 048

REACTIONS (2)
  - Vaginal haemorrhage [None]
  - Inappropriate schedule of drug administration [None]
